FAERS Safety Report 22325222 (Version 2)
Quarter: 2023Q2

REPORT INFORMATION
  Report Type: Report from Study
  Country: US (occurrence: US)
  Receive Date: 20230516
  Receipt Date: 20230531
  Transmission Date: 20230722
  Serious: Yes (Other)
  Sender: FDA-Public Use
  Company Number: US-ABBVIE-4760552

PATIENT
  Age: 69 Year
  Sex: Male

DRUGS (16)
  1. VENCLEXTA [Suspect]
     Active Substance: VENETOCLAX
     Indication: Acute myeloid leukaemia
     Dosage: FORM STRENGTH- 100 MILLIGRAM
     Route: 048
  2. HYDROMORPHONE [Concomitant]
     Active Substance: HYDROMORPHONE
     Indication: Pain
     Dosage: 1 TABLET ORALLY EVERY 4 HOURS?FORM STRENGTH- 2 MG
     Route: 048
  3. FILGRASTIM [Concomitant]
     Active Substance: FILGRASTIM
     Indication: Acute myeloid leukaemia
     Dosage: D1-5 Q7 D CYCLE
     Dates: start: 20221212
  4. ACYCLOVIR [Concomitant]
     Active Substance: ACYCLOVIR
     Indication: Product used for unknown indication
     Route: 048
  5. ACYCLOVIR [Concomitant]
     Active Substance: ACYCLOVIR
     Indication: Product used for unknown indication
     Dosage: FORM STRENGTH- 400 MG
     Route: 048
  6. AMOXICILLIN\CLAVULANIC ACID [Concomitant]
     Active Substance: AMOXICILLIN\CLAVULANIC ACID
     Indication: Product used for unknown indication
     Dosage: 875MG-125MG TABLET
     Route: 048
  7. ZARXIO [Concomitant]
     Active Substance: FILGRASTIM-SNDZ
     Indication: Product used for unknown indication
     Dosage: FORM STRENGTH- 480 MG FREQUENCY TEXT: ONCE
     Route: 058
  8. EPOETIN ALFA [Concomitant]
     Active Substance: ERYTHROPOIETIN
     Indication: Anaemia
     Dosage: Q7D, C1D1- CYCLE, 1ST LINE OR INDUCTION
     Dates: start: 20230505
  9. ALLOPURINOL [Concomitant]
     Active Substance: ALLOPURINOL
     Indication: Product used for unknown indication
     Dosage: FORM STRENGTH- 300 MG
     Route: 048
  10. RETACRIT [Concomitant]
     Active Substance: EPOETIN ALFA-EPBX
     Indication: Product used for unknown indication
     Dosage: FORM STRENGTH- 40000 UNIT
     Route: 058
  11. MELOXICAM [Concomitant]
     Active Substance: MELOXICAM
     Indication: Product used for unknown indication
     Dosage: FORM STRENGTH- 15 MG
     Route: 048
  12. DEXAMETHASONE [Concomitant]
     Active Substance: DEXAMETHASONE
     Indication: Product used for unknown indication
     Dosage: 8 MG GIVE 30-60 MINS PRIOR TO CHEMOTHERAPY?FORM STRENGTH- 10 MG
     Route: 048
  13. ONDANSETRON [Concomitant]
     Active Substance: ONDANSETRON
     Indication: Nausea
     Dosage: 2 TABLET ORALLY 1 TIMES DAILY AS NEEDED FOR NAUSEA AND VOMITING. TAKE PRIOR TO  INFUSION?FORM STR...
     Route: 048
  14. ONDANSETRON [Concomitant]
     Active Substance: ONDANSETRON
     Indication: Nausea
     Dosage: 1 TABLET ORALLY 1 TIMES DAILY AS NEEDED FOR NAUSEA AND VOMITING. TAKE PRIOR TO  INFUSION?FORM STR...
     Route: 048
  15. CYCLOBENZAPRINE [Concomitant]
     Active Substance: CYCLOBENZAPRINE
     Indication: Product used for unknown indication
     Dosage: TIME INTERVAL: 0.33333333 DAYS: FORM STRENGTH- 10 MG
     Route: 048
  16. GABAPENTIN [Concomitant]
     Active Substance: GABAPENTIN
     Indication: Product used for unknown indication
     Dosage: TIME INTERVAL: 0.33333333 DAYS: FORM STRENGTH- 100 MILLIGRAM
     Route: 048

REACTIONS (15)
  - Transfusion [Unknown]
  - Claustrophobia [Unknown]
  - Off label use [Unknown]
  - Unevaluable event [Unknown]
  - Emergency care [Unknown]
  - Diabetes mellitus [Unknown]
  - Neck pain [Not Recovered/Not Resolved]
  - Anaemia [Not Recovered/Not Resolved]
  - Cervical spinal stenosis [Not Recovered/Not Resolved]
  - Anaemia macrocytic [Not Recovered/Not Resolved]
  - Acquired amegakaryocytic thrombocytopenia [Not Recovered/Not Resolved]
  - Dehydration [Not Recovered/Not Resolved]
  - Muscle spasms [Not Recovered/Not Resolved]
  - Pain [Unknown]
  - Neoplasm malignant [Unknown]

NARRATIVE: CASE EVENT DATE: 20221110
